FAERS Safety Report 6571059-0 (Version None)
Quarter: 2010Q1

REPORT INFORMATION
  Report Type: 
  Country: None (occurrence: None)
  Receive Date: 20100202
  Receipt Date: 20100202
  Transmission Date: 20100710
  Serious: Yes (Hospitalization)
  Sender: FDA-Public Use
  Company Number: None

PATIENT
  Age: 83 Year
  Sex: Male
  Weight: 73 kg

DRUGS (1)
  1. DOCETAXEL [Suspect]
     Indication: BLADDER CANCER
     Dosage: 112 MG ONCE IV
     Route: 042
     Dates: start: 20090708, end: 20090708

REACTIONS (6)
  - ASTHENIA [None]
  - CONFUSIONAL STATE [None]
  - DIARRHOEA [None]
  - METASTASES TO LUNG [None]
  - ORAL CANDIDIASIS [None]
  - PANCYTOPENIA [None]
